FAERS Safety Report 5802217-8 (Version None)
Quarter: 2008Q3

REPORT INFORMATION
  Report Type: 
  Country: None (occurrence: None)
  Receive Date: 20080707
  Receipt Date: 20080625
  Transmission Date: 20090109
  Serious: Yes (Other)
  Sender: FDA-Public Use
  Company Number: US-PFIZER INC-2008053798

PATIENT
  Sex: Female

DRUGS (5)
  1. GLIPIZIDE [Suspect]
     Indication: DIABETES MELLITUS
  2. METFORMIN HCL [Suspect]
  3. LANTUS [Concomitant]
  4. ACETYLSALICYLIC ACID SRT [Concomitant]
  5. COZAAR [Concomitant]

REACTIONS (10)
  - BLOOD CREATINE INCREASED [None]
  - BURNING SENSATION [None]
  - HYPERSENSITIVITY [None]
  - INSOMNIA [None]
  - MUSCLE SPASMS [None]
  - NIGHT SWEATS [None]
  - PERIPHERAL COLDNESS [None]
  - RED BLOOD CELL COUNT DECREASED [None]
  - RESPIRATORY DISORDER [None]
  - WEIGHT INCREASED [None]
